FAERS Safety Report 23239151 (Version 2)
Quarter: 2023Q4

REPORT INFORMATION
  Report Type: Spontaneous
  Country: DE (occurrence: DE)
  Receive Date: 20231129
  Receipt Date: 20231204
  Transmission Date: 20240110
  Serious: Yes (Hospitalization, Other)
  Sender: FDA-Public Use
  Company Number: DE-ABBVIE-5511181

PATIENT
  Sex: Male
  Weight: 90 kg

DRUGS (3)
  1. SKYRIZI [Suspect]
     Active Substance: RISANKIZUMAB-RZAA
     Indication: Crohn^s disease
     Dosage: FIRST DOSE
     Route: 042
     Dates: start: 20231027, end: 20231027
  2. METAMIZOLE [Concomitant]
     Active Substance: METAMIZOLE
     Indication: Product used for unknown indication
     Dosage: 4X30
     Dates: start: 20231020
  3. MYRRHINIL-INTEST [Concomitant]
     Indication: Product used for unknown indication
     Dosage: UP TO 4X3
     Dates: start: 20231018

REACTIONS (3)
  - Venous thrombosis limb [Not Recovered/Not Resolved]
  - Crohn^s disease [Unknown]
  - Pulmonary embolism [Not Recovered/Not Resolved]

NARRATIVE: CASE EVENT DATE: 20230101
